FAERS Safety Report 4633521-7 (Version None)
Quarter: 2005Q2

REPORT INFORMATION
  Report Type: 
  Country: None (occurrence: None)
  Receive Date: 20050331
  Receipt Date: 20041111
  Transmission Date: 20051028
  Serious: Yes (Other)
  Sender: FDA-Public Use
  Company Number: 200415477BCC

PATIENT
  Age: 78 Year
  Sex: Female
  Weight: 61.2356 kg

DRUGS (4)
  1. ALEVE [Suspect]
     Indication: PAIN
     Dosage: 220 MG, QD, ORAL
     Route: 048
     Dates: start: 20040101
  2. TOPROL-XL [Concomitant]
  3. MULTIVITAMIN AND MINERAL SUPPLEMENT [Concomitant]
  4. ESTRACE [Concomitant]

REACTIONS (3)
  - ABDOMINAL PAIN UPPER [None]
  - DIARRHOEA [None]
  - HAEMATOCHEZIA [None]
